FAERS Safety Report 6836049-9 (Version None)
Quarter: 2010Q3

REPORT INFORMATION
  Report Type: 
  Country: None (occurrence: None)
  Receive Date: 20100713
  Receipt Date: 20100709
  Transmission Date: 20110219
  Serious: Yes (Other)
  Sender: FDA-Public Use
  Company Number: D0067473A

PATIENT
  Sex: Female
  Weight: 65 kg

DRUGS (1)
  1. ARIXTRA [Suspect]
     Dosage: 7.5ML PER DAY
     Route: 058
     Dates: start: 20100222, end: 20100326

REACTIONS (2)
  - EOSINOPHILIA [None]
  - NEUTROPENIA [None]
